FAERS Safety Report 7890204-8 (Version None)
Quarter: 2011Q4

REPORT INFORMATION
  Report Type: 
  Country: None (occurrence: None)
  Receive Date: 20111103
  Receipt Date: 20110726
  Transmission Date: 20120403
  Serious: No
  Sender: FDA-Public Use
  Company Number: US-AMGEN-KDL277006

PATIENT
  Age: 38 Year
  Sex: Female

DRUGS (1)
  1. ENBREL [Suspect]
     Indication: PSORIATIC ARTHROPATHY
     Dosage: 25 MG, 2 TIMES/WK
     Route: 058
     Dates: start: 20000401

REACTIONS (7)
  - HEPATIC ENZYME INCREASED [None]
  - BRONCHITIS [None]
  - ARTHRITIS [None]
  - SINUSITIS [None]
  - INFLUENZA [None]
  - NON-CARDIAC CHEST PAIN [None]
  - PSORIATIC ARTHROPATHY [None]
